FAERS Safety Report 5986269-0 (Version None)
Quarter: 2008Q4

REPORT INFORMATION
  Report Type: 
  Country: None (occurrence: None)
  Receive Date: 20081209
  Receipt Date: 20081203
  Transmission Date: 20090506
  Serious: Yes (Life-Threatening, Hospitalization)
  Sender: FDA-Public Use
  Company Number: JP-BRISTOL-MYERS SQUIBB COMPANY-14226922

PATIENT
  Age: 50 Year
  Sex: Female
  Weight: 56 kg

DRUGS (8)
  1. ABILIFY [Suspect]
     Indication: SCHIZOPHRENIA
     Dosage: 12MG QD 15NOV-28NOV07:14D 12MG BID 29NOV-12DEC07:14D 13DEC07-20AUG08 15MG/BID:252D 30MG/D:21AUG08
     Route: 048
     Dates: start: 20071115
  2. BENZALIN [Concomitant]
     Dates: start: 20060208, end: 20080625
  3. FLUNITRAZEPAM [Concomitant]
     Dosage: TABLET
     Dates: start: 20060220
  4. LORAZEPAM [Concomitant]
     Dosage: TABLET
     Dates: start: 20061023
  5. RISPERDAL [Concomitant]
     Dates: start: 20061228
  6. HIRNAMIN [Concomitant]
     Dates: start: 20070118
  7. DEPAKENE [Concomitant]
     Dosage: TABLET
     Dates: start: 20070205
  8. DORAL [Concomitant]
     Dosage: TABLET FORM
     Dates: start: 20080626

REACTIONS (1)
  - WATER INTOXICATION [None]
